FAERS Safety Report 5251975-2 (Version None)
Quarter: 2007Q1

REPORT INFORMATION
  Report Type: 
  Country: None (occurrence: None)
  Receive Date: 20070223
  Receipt Date: 20070215
  Transmission Date: 20070707
  Serious: Yes (Hospitalization)
  Sender: FDA-Public Use
  Company Number: 163-21880-06080335

PATIENT
  Age: 59 Year
  Sex: Female

DRUGS (1)
  1. REVLIMID [Suspect]
     Indication: MULTIPLE MYELOMA
     Dosage: 20 MG, QD FOR 21 DAYS, ORAL
     Route: 048
     Dates: start: 20060725

REACTIONS (3)
  - DYSPNOEA [None]
  - LOCALISED INFECTION [None]
  - TACHYCARDIA [None]
